FAERS Safety Report 9994812 (Version 1)
Quarter: 2014Q1

REPORT INFORMATION
  Report Type: Spontaneous
  Country: US (occurrence: None)
  Receive Date: 20140307
  Receipt Date: 20140307
  Transmission Date: 20141002
  Serious: Yes (Life-Threatening, Hospitalization)
  Sender: FDA-Public Use
  Company Number: None

PATIENT
  Age: 31 Year
  Sex: Female

DRUGS (1)
  1. BACTRIM [Suspect]
     Indication: RESPIRATORY TRACT INFECTION
     Dosage: 3 OR 4 DAY COURSE  TAKEN BY MOUTH
     Route: 048

REACTIONS (1)
  - Convulsion [None]
